FAERS Safety Report 4350894-3 (Version None)
Quarter: 2004Q2

REPORT INFORMATION
  Report Type: 
  Country: None (occurrence: None)
  Receive Date: 20040428
  Receipt Date: 20040413
  Transmission Date: 20050107
  Serious: Yes (Hospitalization)
  Sender: FDA-Public Use
  Company Number: USA040464820

PATIENT
  Age: 64 Year
  Sex: Female

DRUGS (14)
  1. FORTEO [Suspect]
     Indication: OSTEOPOROSIS
     Dates: start: 20031001
  2. VITAMIN C [Concomitant]
  3. POTASSIUM [Concomitant]
  4. CALCIUM [Concomitant]
  5. ALLEGRA [Concomitant]
  6. ACCUPRIL [Concomitant]
  7. NORVASC [Concomitant]
  8. LASIX [Concomitant]
  9. PRAVACHOL [Concomitant]
  10. VERELAN (VERAPAMIL HYDROCHLORIDE) [Concomitant]
  11. INSULIN [Concomitant]
  12. BUSPAR [Concomitant]
  13. CELEBREX [Concomitant]
  14. LODINE [Concomitant]

REACTIONS (7)
  - ABDOMINAL PAIN UPPER [None]
  - FULL BLOOD COUNT DECREASED [None]
  - HERNIA [None]
  - PHARMACEUTICAL PRODUCT COMPLAINT [None]
  - PNEUMONIA [None]
  - POST PROCEDURAL PAIN [None]
  - WHITE BLOOD CELL COUNT INCREASED [None]
